FAERS Safety Report 8773049 (Version 2)
Quarter: 2012Q4

REPORT INFORMATION
  Report Type: 
  Country: US (occurrence: US)
  Receive Date: 20120907
  Receipt Date: 20120924
  Transmission Date: 20130627
  Serious: Yes (Other)
  Sender: FDA-Public Use
  Company Number: US-ABBOTT-12P-163-0973433-00

PATIENT
  Sex: Male
  Weight: 94.43 kg

DRUGS (11)
  1. NORVIR [Suspect]
     Indication: HIV INFECTION
     Dates: end: 2007
  2. VICODIN [Suspect]
     Indication: PAIN
  3. GABAPENTIN [Suspect]
     Indication: NEUROPATHY PERIPHERAL
     Dates: start: 2010
  4. TRUVADA [Suspect]
     Indication: HIV INFECTION
     Dates: start: 2001
  5. FLOMAX [Suspect]
     Indication: PROSTATOMEGALY
  6. INTELENCE [Suspect]
     Indication: HIV INFECTION
  7. INTELENCE [Suspect]
  8. ISENTRESS [Suspect]
     Indication: HIV INFECTION
  9. TRAMADOL [Suspect]
     Indication: MIGRAINE
  10. ALCOHOL [Suspect]
     Indication: PRODUCT USED FOR UNKNOWN INDICATION
  11. IBUPROFEN [Concomitant]
     Indication: PRODUCT USED FOR UNKNOWN INDICATION

REACTIONS (15)
  - Blindness [Unknown]
  - Migraine [Unknown]
  - Anxiety [Unknown]
  - Prostatic disorder [Not Recovered/Not Resolved]
  - Erectile dysfunction [Not Recovered/Not Resolved]
  - Neuropathy peripheral [Unknown]
  - Medication error [Unknown]
  - Somnolence [Unknown]
  - Drug ineffective [Unknown]
  - Lip disorder [Unknown]
  - Haematuria [Recovered/Resolved]
  - Abdominal pain [Recovered/Resolved]
  - Prostatomegaly [Recovered/Resolved]
  - Urinary tract infection [Recovered/Resolved]
  - Hypersensitivity [Unknown]
